FAERS Safety Report 7176481-X (Version None)
Quarter: 2010Q4

REPORT INFORMATION
  Report Type: 
  Country: None (occurrence: None)
  Receive Date: 20101215
  Receipt Date: 20101215
  Transmission Date: 20110411
  Serious: Yes (Hospitalization)
  Sender: FDA-Public Use
  Company Number: None

PATIENT
  Age: 50 Year
  Sex: Male
  Weight: 58 kg

DRUGS (2)
  1. VANCOMYCIN [Suspect]
     Indication: OSTEOMYELITIS
     Dosage: 1.75 GM Q12H IV
     Route: 042
     Dates: start: 20101118, end: 20101130
  2. ZOSYN [Suspect]
     Indication: OSTEOMYELITIS
     Dosage: 3.375 GM Q6 H IV
     Route: 042

REACTIONS (4)
  - BLOOD CREATININE INCREASED [None]
  - BLOOD POTASSIUM INCREASED [None]
  - DIALYSIS [None]
  - DRUG LEVEL INCREASED [None]
